FAERS Safety Report 24121106 (Version 1)
Quarter: 2024Q3

REPORT INFORMATION
  Report Type: Report from Study
  Country: ZA (occurrence: ZA)
  Receive Date: 20240722
  Receipt Date: 20240722
  Transmission Date: 20241017
  Serious: Yes (Hospitalization)
  Sender: ABBVIE
  Company Number: ZA-ABBVIE-5845633

PATIENT
  Age: 2 Year
  Sex: Male

DRUGS (2)
  1. BOTOX [Suspect]
     Active Substance: ONABOTULINUMTOXINA
     Indication: Cerebral palsy
     Dosage: TIME INTERVAL: AS NECESSARY: FREQUENCY: EVERY 4 MONTHS?FORM STRENGTH: 200 IU
     Route: 065
     Dates: start: 20240303, end: 20240303
  2. BOTOX [Suspect]
     Active Substance: ONABOTULINUMTOXINA
     Indication: Cerebral palsy
     Dosage: TIME INTERVAL: AS NECESSARY
     Route: 065
     Dates: start: 202310, end: 202310

REACTIONS (1)
  - Surgery [Unknown]
